FAERS Safety Report 18787637 (Version 1)
Quarter: 2021Q1

REPORT INFORMATION
  Report Type: Spontaneous
  Country: US (occurrence: US)
  Receive Date: 20210125
  Receipt Date: 20210125
  Transmission Date: 20210419
  Serious: No
  Sender: FDA-Public Use
  Company Number: US-ROCHE-2650683

PATIENT
  Sex: Female

DRUGS (16)
  1. ALBUTEROL SULFATE HFA [Concomitant]
     Active Substance: ALBUTEROL SULFATE
  2. BIOTIN [Concomitant]
     Active Substance: BIOTIN
  3. ONDANSETRON [Concomitant]
     Active Substance: ONDANSETRON
  4. BUPROPION HCL ER [Concomitant]
     Active Substance: BUPROPION HYDROCHLORIDE
  5. NORETHINDRONE. [Concomitant]
     Active Substance: NORETHINDRONE
  6. LORATADINE. [Concomitant]
     Active Substance: LORATADINE
  7. CLONAZEPAM. [Concomitant]
     Active Substance: CLONAZEPAM
  8. EDARBYCLOR [Concomitant]
     Active Substance: AZILSARTAN KAMEDOXOMIL\CHLORTHALIDONE
  9. VITAMIN D3 [Concomitant]
     Active Substance: CHOLECALCIFEROL
  10. RITUXAN [Suspect]
     Active Substance: RITUXIMAB
     Indication: RHEUMATOID ARTHRITIS
     Route: 065
  11. FOLIC ACID. [Concomitant]
     Active Substance: FOLIC ACID
  12. AIMOVIG [Concomitant]
     Active Substance: ERENUMAB-AOOE
  13. DEXILANT [Concomitant]
     Active Substance: DEXLANSOPRAZOLE
  14. HYDROCODONE [Concomitant]
     Active Substance: HYDROCODONE
  15. NAPROXEN. [Concomitant]
     Active Substance: NAPROXEN
  16. OXCARBAZEPINE. [Concomitant]
     Active Substance: OXCARBAZEPINE

REACTIONS (2)
  - Blood pressure increased [Not Recovered/Not Resolved]
  - Pruritus [Not Recovered/Not Resolved]
